FAERS Safety Report 8478515-9 (Version None)
Quarter: 2012Q2

REPORT INFORMATION
  Report Type: 
  Country: None (occurrence: None)
  Receive Date: 20120629
  Receipt Date: 20120625
  Transmission Date: 20120825
  Serious: Yes (Death, Hospitalization)
  Sender: FDA-Public Use
  Company Number: JP-ELI_LILLY_AND_COMPANY-JP201007007009

PATIENT
  Sex: Male
  Weight: 44 kg

DRUGS (16)
  1. ENALAPRIL MALEATE [Concomitant]
     Indication: HYPERTENSION
     Dosage: 1 DF, QD
     Route: 048
     Dates: end: 20100224
  2. KETAS [Concomitant]
     Indication: HEMIPARESIS
     Dosage: 10 MG, TID
     Route: 048
     Dates: end: 20100224
  3. FENTANYL-100 [Concomitant]
     Dosage: 1 DF, UNK
     Route: 062
     Dates: start: 20100217, end: 20100307
  4. GEMZAR [Suspect]
     Dosage: 1000 MG, UNK
     Route: 042
     Dates: start: 20081111, end: 20090106
  5. OXYCONTIN [Concomitant]
     Indication: CANCER PAIN
     Dosage: 1 DF, BID
     Route: 048
     Dates: end: 20100217
  6. RABEPRAZOLE SODIUM [Concomitant]
     Indication: PROPHYLAXIS
     Dosage: 2 DF, QD
     Route: 048
     Dates: start: 20091020, end: 20100224
  7. GEMZAR [Suspect]
     Indication: BILE DUCT CANCER STAGE I
     Dosage: 1360 MG, UNK
     Route: 042
     Dates: start: 20081007, end: 20081014
  8. PHENOBARBITAL TAB [Concomitant]
     Indication: HEMIPARESIS
     Dosage: 1 G, QD
     Route: 048
     Dates: end: 20100224
  9. TS 1 /JPN/ [Concomitant]
     Dosage: 100 MG, UNK
     Route: 048
     Dates: start: 20090915, end: 20100119
  10. LOXONIN [Concomitant]
     Indication: CANCER PAIN
     Dosage: 1 DF, TID
     Route: 048
     Dates: end: 20091009
  11. TS 1 /JPN/ [Concomitant]
     Indication: BILE DUCT CANCER STAGE I
     Dosage: 80 MG, UNK
     Route: 048
     Dates: start: 20081007, end: 20090908
  12. PANCREAZE [Concomitant]
     Indication: DYSPEPSIA
     Dosage: 1 DF, TID
     Route: 048
     Dates: start: 20090915, end: 20100224
  13. BENIDIPINE [Concomitant]
     Indication: HYPERTENSION
     Dosage: 0.5 DF, QD
     Route: 048
     Dates: end: 20100224
  14. TAMSULOSIN HCL [Concomitant]
     Indication: BENIGN PROSTATIC HYPERPLASIA
     Dosage: 1 DF, QD
     Route: 048
     Dates: end: 20100224
  15. GEMZAR [Suspect]
     Dosage: 800 MG, UNK
     Route: 042
     Dates: start: 20090120, end: 20100126
  16. TIZANIDINE HYDROCHLORIDE [Concomitant]
     Indication: HEMIPARESIS
     Dosage: 1 MG, TID
     Route: 048
     Dates: end: 20100224

REACTIONS (1)
  - INTERSTITIAL LUNG DISEASE [None]
